FAERS Safety Report 24263176 (Version 1)
Quarter: 2024Q3

REPORT INFORMATION
  Report Type: Spontaneous
  Country: CN (occurrence: CN)
  Receive Date: 20240829
  Receipt Date: 20240829
  Transmission Date: 20241016
  Serious: Yes (Other)
  Sender: NOVARTIS
  Company Number: CN-002147023-NVSC2024CN173474

PATIENT
  Age: 73 Year
  Sex: Male
  Weight: 60 kg

DRUGS (6)
  1. OXCARBAZEPINE [Suspect]
     Active Substance: OXCARBAZEPINE
     Indication: Epilepsy
     Dosage: 0.3 G, TID
     Route: 048
     Dates: start: 20240817, end: 20240818
  2. PANTOPRAZOLE SODIUM [Suspect]
     Active Substance: PANTOPRAZOLE SODIUM
     Indication: Symptomatic treatment
     Dosage: 40 MG, BID (INTRAVENOUS DRIP)
     Route: 042
     Dates: start: 20240817, end: 20240819
  3. VANCOMYCIN HYDROCHLORIDE [Suspect]
     Active Substance: VANCOMYCIN HYDROCHLORIDE
     Indication: Pneumonia
     Dosage: 0.5 G, BID (INTRAVENOUS DRIP)
     Route: 042
     Dates: start: 20240817, end: 20240818
  4. BIFENDATE [Suspect]
     Active Substance: BIFENDATE
     Indication: Liver disorder
     Dosage: 7.5 MG, TID
     Route: 048
     Dates: start: 20240817, end: 20240818
  5. SODIUM CHLORIDE [Concomitant]
     Active Substance: SODIUM CHLORIDE
     Indication: Vehicle solution use
     Dosage: 100 ML, BID (INTRAVENOUS DRIP)
     Route: 042
     Dates: start: 20240817, end: 20240819
  6. DEXTROSE [Concomitant]
     Active Substance: DEXTROSE\DEXTROSE MONOHYDRATE
     Indication: Vehicle solution use
     Dosage: 250 ML, BID (INTRAVENOUS DRIP)
     Route: 042
     Dates: start: 20240817, end: 20240818

REACTIONS (6)
  - Drug eruption [Unknown]
  - Rash macular [Recovering/Resolving]
  - Pruritus [Recovering/Resolving]
  - Rash erythematous [Recovering/Resolving]
  - Hyperpyrexia [Recovering/Resolving]
  - Tachypnoea [Unknown]

NARRATIVE: CASE EVENT DATE: 20240818
